FAERS Safety Report 6005869-5 (Version None)
Quarter: 2008Q4

REPORT INFORMATION
  Report Type: 
  Country: None (occurrence: None)
  Receive Date: 20081217
  Receipt Date: 20071227
  Transmission Date: 20090506
  Serious: No
  Sender: FDA-Public Use
  Company Number: US-AMGEN-KDL258401

PATIENT
  Sex: Female

DRUGS (1)
  1. ENBREL [Suspect]
     Indication: ANKYLOSING SPONDYLITIS
     Route: 058
     Dates: start: 20071217

REACTIONS (5)
  - ERYTHEMA [None]
  - INDURATION [None]
  - INJECTION SITE IRRITATION [None]
  - LOCAL SWELLING [None]
  - PRURITUS [None]
